FAERS Safety Report 13344313 (Version 7)
Quarter: 2018Q4

REPORT INFORMATION
  Report Type: Report from Study
  Country: None (occurrence: US)
  Receive Date: 20170317
  Receipt Date: 20181009
  Transmission Date: 20190204
  Serious: Yes (Other)
  Sender: FDA-Public Use
  Company Number: US-ABBVIE-16K-163-1811876-00

PATIENT
  Sex: Male

DRUGS (2)
  1. HUMIRA [Suspect]
     Active Substance: ADALIMUMAB
     Route: 058
     Dates: start: 20170102
  2. HUMIRA [Suspect]
     Active Substance: ADALIMUMAB
     Indication: RHEUMATOID ARTHRITIS
     Route: 058
     Dates: start: 20160908, end: 201612

REACTIONS (17)
  - Musculoskeletal stiffness [Not Recovered/Not Resolved]
  - Pain in extremity [Not Recovered/Not Resolved]
  - Gait disturbance [Unknown]
  - Drug effect incomplete [Unknown]
  - Shoulder arthroplasty [Recovering/Resolving]
  - Injection site swelling [Unknown]
  - Back pain [Recovering/Resolving]
  - Injection site erythema [Unknown]
  - Peripheral swelling [Not Recovered/Not Resolved]
  - Arthritis [Unknown]
  - Muscle spasms [Not Recovered/Not Resolved]
  - Arthralgia [Unknown]
  - Joint injection [Recovering/Resolving]
  - Intervertebral disc degeneration [Unknown]
  - Injection site pain [Not Recovered/Not Resolved]
  - Osteoarthritis [Unknown]
  - Loss of personal independence in daily activities [Unknown]

NARRATIVE: CASE EVENT DATE: 2016
